FAERS Safety Report 6153038-0 (Version None)
Quarter: 2009Q2

REPORT INFORMATION
  Report Type: 
  Country: None (occurrence: None)
  Receive Date: 20090409
  Receipt Date: 20090402
  Transmission Date: 20091009
  Serious: Yes (Hospitalization, Other)
  Sender: FDA-Public Use
  Company Number: WAES 0903USA00448

PATIENT
  Age: 76 Year
  Sex: Male

DRUGS (9)
  1. CAP VORINOSTAT [Suspect]
     Indication: MALIGNANT MELANOMA
     Dosage: 400 MG/DAILY, PO
     Route: 048
     Dates: start: 20090106, end: 20090117
  2. VELCADE [Suspect]
     Indication: MALIGNANT MELANOMA
     Dosage: 2.6 MG/1X; IV
     Route: 042
     Dates: start: 20090116, end: 20090116
  3. APROVEL [Concomitant]
  4. MEDROL [Concomitant]
  5. NEURONTIN [Concomitant]
  6. NOVO-NORM [Concomitant]
  7. PRAVASINE [Concomitant]
  8. REDOMEX [Concomitant]
  9. ZOLPIDEM TARTRATE [Concomitant]

REACTIONS (7)
  - BLOOD CREATINE INCREASED [None]
  - FIBRIN D DIMER INCREASED [None]
  - PNEUMONIA [None]
  - RESPIRATORY DISTRESS [None]
  - RIB FRACTURE [None]
  - SHOCK [None]
  - STAPHYLOCOCCAL SEPSIS [None]
